FAERS Safety Report 6188780-9 (Version None)
Quarter: 2009Q2

REPORT INFORMATION
  Report Type: 
  Country: None (occurrence: None)
  Receive Date: 20090513
  Receipt Date: 20090507
  Transmission Date: 20091009
  Serious: No
  Sender: FDA-Public Use
  Company Number: JP-MERCK-0904USA04583

PATIENT
  Sex: Female

DRUGS (2)
  1. FOSAMAX [Suspect]
     Indication: OSTEOPOROSIS
     Route: 048
     Dates: start: 20090101, end: 20090101
  2. LOXONIN [Concomitant]
     Indication: ANALGESIA
     Route: 065

REACTIONS (3)
  - OEDEMA PERIPHERAL [None]
  - PAIN [None]
  - SUDDEN HEARING LOSS [None]
